FAERS Safety Report 5509442-4 (Version None)
Quarter: 2007Q4

REPORT INFORMATION
  Report Type: 
  Country: None (occurrence: None)
  Receive Date: 20071107
  Receipt Date: 20071030
  Transmission Date: 20080405
  Serious: Yes (Other)
  Sender: FDA-Public Use
  Company Number: US-PFIZER INC-2007073700

PATIENT
  Sex: Female
  Weight: 95 kg

DRUGS (4)
  1. DEPO-PROVERA SUSPENSION/INJ [Suspect]
     Indication: MENORRHAGIA
     Route: 030
     Dates: start: 20070806, end: 20070806
  2. PRENATAL VITAMINS [Concomitant]
  3. IRON [Concomitant]
     Indication: ANAEMIA
  4. XANAX [Concomitant]
     Indication: ANXIETY

REACTIONS (2)
  - INJECTION SITE ERYTHEMA [None]
  - INJECTION SITE PAIN [None]
